FAERS Safety Report 20596613 (Version 1)
Quarter: 2022Q1

REPORT INFORMATION
  Report Type: Spontaneous
  Country: US (occurrence: US)
  Receive Date: 20220315
  Receipt Date: 20220315
  Transmission Date: 20220423
  Serious: Yes (Other)
  Sender: FDA-Public Use
  Company Number: US-002147023-NVSC2022US051848

PATIENT
  Age: 59 Year
  Sex: Male

DRUGS (2)
  1. XOLAIR [Suspect]
     Active Substance: OMALIZUMAB
     Indication: Product used for unknown indication
     Dosage: UNK
     Route: 065
  2. PREDNISONE [Concomitant]
     Active Substance: PREDNISONE
     Indication: Product used for unknown indication
     Dosage: UNK
     Route: 065

REACTIONS (9)
  - Loss of control of legs [Unknown]
  - Tinnitus [Unknown]
  - Back pain [Unknown]
  - Condition aggravated [Unknown]
  - Lethargy [Unknown]
  - Nasopharyngitis [Unknown]
  - Urticaria [Unknown]
  - Nausea [Unknown]
  - Injection site pain [Unknown]
